FAERS Safety Report 4560137-3 (Version None)
Quarter: 2005Q1

REPORT INFORMATION
  Report Type: 
  Country: None (occurrence: None)
  Receive Date: 20050119
  Receipt Date: 20050104
  Transmission Date: 20050727
  Serious: Yes (Death)
  Sender: FDA-Public Use
  Company Number: 2005-BP-00657BP

PATIENT
  Age: 85 Year
  Sex: Female

DRUGS (1)
  1. MIRAPEX [Suspect]
     Indication: PARKINSON'S DISEASE
     Dosage: 0.25 MG (0.25 MG, 1 IN 1 DAY) PO
     Route: 048
     Dates: start: 20020927, end: 20040308

REACTIONS (1)
  - BRAIN DAMAGE [None]
